FAERS Safety Report 6476662-4 (Version None)
Quarter: 2009Q4

REPORT INFORMATION
  Report Type: 
  Country: None (occurrence: None)
  Receive Date: 20091119
  Receipt Date: 20090729
  Transmission Date: 20100525
  Serious: Yes (Congenital Anomaly)
  Sender: FDA-Public Use
  Company Number: 2008-185525-NL

PATIENT
  Sex: Male
  Weight: 2029 kg

DRUGS (1)
  1. IMPLANON [Suspect]
     Indication: DRUG EXPOSURE DURING PREGNANCY
     Dosage: 1 DF; TRPL
     Route: 064
     Dates: start: 20080307, end: 20080913

REACTIONS (5)
  - APGAR SCORE LOW [None]
  - CONGENITAL GENITAL MALFORMATION [None]
  - HYPOSPADIAS [None]
  - MATERNAL DRUGS AFFECTING FOETUS [None]
  - MOSAICISM [None]
